FAERS Safety Report 7486223-6 (Version None)
Quarter: 2011Q2

REPORT INFORMATION
  Report Type: 
  Country: None (occurrence: None)
  Receive Date: 20110517
  Receipt Date: 20110203
  Transmission Date: 20111010
  Serious: No
  Sender: FDA-Public Use
  Company Number: A0911845A

PATIENT
  Sex: Male

DRUGS (1)
  1. VOTRIENT [Suspect]
     Dosage: 400MG PER DAY
     Route: 065
     Dates: start: 20100901

REACTIONS (3)
  - DIARRHOEA [None]
  - COUGH [None]
  - TOOTH INFECTION [None]
